FAERS Safety Report 4980935-1 (Version None)
Quarter: 2006Q2

REPORT INFORMATION
  Report Type: 
  Country: None (occurrence: None)
  Receive Date: 20060418
  Receipt Date: 20060403
  Transmission Date: 20061013
  Serious: Yes (Hospitalization)
  Sender: FDA-Public Use
  Company Number: US200604000502

PATIENT
  Age: 31 Year
  Sex: Female

DRUGS (3)
  1. STRATTERA [Suspect]
     Dates: start: 20060402
  2. RITALIN [Concomitant]
  3. ZOLOFT [Concomitant]

REACTIONS (3)
  - INTENTIONAL OVERDOSE [None]
  - SUICIDE ATTEMPT [None]
  - TACHYCARDIA [None]
